FAERS Safety Report 6406698-0 (Version None)
Quarter: 2009Q4

REPORT INFORMATION
  Report Type: 
  Country: None (occurrence: None)
  Receive Date: 20091020
  Receipt Date: 20091009
  Transmission Date: 20100525
  Serious: Yes (Other)
  Sender: FDA-Public Use
  Company Number: US-RANBAXY-2009RR-28591

PATIENT
  Age: 13 Year
  Sex: Female

DRUGS (3)
  1. LISINOPRIL [Suspect]
     Indication: SUICIDE ATTEMPT
     Dosage: UNK MG, UNK
  2. NICORANDIL [Suspect]
     Indication: SUICIDE ATTEMPT
     Dosage: UNK MG, UNK
  3. METOCLOPRAMIDE [Concomitant]

REACTIONS (3)
  - ELECTROCARDIOGRAM ST-T CHANGE [None]
  - HYPOTENSION [None]
  - OVERDOSE [None]
